FAERS Safety Report 4981049-7 (Version None)
Quarter: 2006Q2

REPORT INFORMATION
  Report Type: 
  Country: None (occurrence: None)
  Receive Date: 20060424
  Receipt Date: 20060413
  Transmission Date: 20061013
  Serious: Yes (Death)
  Sender: FDA-Public Use
  Company Number: US-JNJFOC-20060403407

PATIENT
  Sex: Female

DRUGS (5)
  1. RISPERDAL CONSTA [Suspect]
     Indication: SCHIZOPHRENIA
     Route: 030
  2. KLONIPIN [Concomitant]
     Dosage: 1-3 AT BEDTIME AS NECESSARY
  3. DEPAKOTE [Concomitant]
     Dosage: THREE (500 MG DOSE) AT BEDTIME
  4. TOPROL-XL [Concomitant]
  5. FOSAMAX [Concomitant]

REACTIONS (2)
  - ADVERSE EVENT [None]
  - DEATH [None]
